FAERS Safety Report 9729759 (Version 1)
Quarter: 2013Q4

REPORT INFORMATION
  Report Type: Spontaneous
  Country: US (occurrence: US)
  Receive Date: 20131204
  Receipt Date: 20131204
  Transmission Date: 20140711
  Serious: No
  Sender: FDA-Public Use
  Company Number: US-GILEAD-2009-0022439

PATIENT
  Age: 68 Year
  Sex: Female

DRUGS (13)
  1. LETAIRIS [Suspect]
     Indication: PULMONARY ARTERIAL HYPERTENSION
     Route: 048
     Dates: start: 20090430, end: 20090515
  2. FUROSEMIDE [Concomitant]
  3. HYDROCHLOROTHIAZIDE [Concomitant]
  4. BENAZEPRIL [Concomitant]
  5. NIFEDIPINE [Concomitant]
  6. AMIODARONE [Concomitant]
  7. CRESTOR [Concomitant]
  8. OXYCODONE [Concomitant]
  9. SIMVASTATIN [Concomitant]
  10. TRAZODONE [Concomitant]
  11. PROZAC [Concomitant]
  12. POTASSIUM CHLORIDE [Concomitant]
  13. DIPHENOXYLATE/ATROPINE [Concomitant]

REACTIONS (1)
  - Oedema [Unknown]
